FAERS Safety Report 8654862 (Version 3)
Quarter: 2012Q4

REPORT INFORMATION
  Report Type: 
  Country: FR (occurrence: FR)
  Receive Date: 20120709
  Receipt Date: 20120917
  Transmission Date: 20130627
  Serious: Yes (Life-Threatening, Hospitalization)
  Sender: FDA-Public Use
  Company Number: FR-GLAXOSMITHKLINE-B0813119A

PATIENT
  Age: 53 None
  Sex: Male
  Weight: 57 kg

DRUGS (2)
  1. ARIXTRA [Suspect]
     Indication: PULMONARY EMBOLISM
     Dosage: 7.5MG Per day
     Route: 058
     Dates: start: 20120426
  2. NORVIR [Concomitant]
     Indication: HIV TEST POSITIVE
     Route: 065

REACTIONS (4)
  - Pulmonary haemorrhage [Recovered/Resolved]
  - Anaemia [Recovered/Resolved]
  - Flank pain [Recovered/Resolved]
  - Incorrect drug administration duration [Unknown]
